FAERS Safety Report 6045826-6 (Version None)
Quarter: 2009Q1

REPORT INFORMATION
  Report Type: 
  Country: None (occurrence: None)
  Receive Date: 20090121
  Receipt Date: 20090106
  Transmission Date: 20090719
  Serious: Yes (Other)
  Sender: FDA-Public Use
  Company Number: US-PFIZER INC-2009152137

PATIENT
  Sex: Male
  Weight: 108.86 kg

DRUGS (4)
  1. CHANTIX [Suspect]
     Indication: SMOKING CESSATION THERAPY
     Dosage: 1 MG, 2X/DAY
     Dates: start: 20080101
  2. LEVEMIR [Concomitant]
     Dosage: UNK
  3. INSULIN [Concomitant]
     Dosage: UNK
  4. OXYBUTYNIN CHLORIDE [Concomitant]
     Dosage: UNK

REACTIONS (3)
  - EYE SWELLING [None]
  - PRURITUS [None]
  - RASH [None]
